FAERS Safety Report 22235967 (Version 2)
Quarter: 2023Q2

REPORT INFORMATION
  Report Type: Report from Study
  Country: US (occurrence: US)
  Receive Date: 20230420
  Receipt Date: 20230518
  Transmission Date: 20230722
  Serious: Yes (Death, Hospitalization, Other)
  Sender: FDA-Public Use
  Company Number: US-KOREA IPSEN Pharma-2022-27488

PATIENT
  Age: 55 Year
  Sex: Female

DRUGS (2)
  1. SOMATULINE DEPOT [Suspect]
     Active Substance: LANREOTIDE ACETATE
     Indication: Pancreatic carcinoma
     Dosage: 120 MG/0.5 ML
     Route: 058
     Dates: start: 20220330
  2. SOMATULINE DEPOT [Suspect]
     Active Substance: LANREOTIDE ACETATE
     Indication: Off label use

REACTIONS (18)
  - Death [Fatal]
  - Neoplasm malignant [Recovering/Resolving]
  - Hepatic neoplasm [Not Recovered/Not Resolved]
  - Blindness [Not Recovered/Not Resolved]
  - Off label use [Unknown]
  - Malnutrition [Not Recovered/Not Resolved]
  - Dehydration [Not Recovered/Not Resolved]
  - Peripheral swelling [Not Recovered/Not Resolved]
  - Hypotension [Not Recovered/Not Resolved]
  - Walking aid user [Not Recovered/Not Resolved]
  - Blood calcium decreased [Not Recovered/Not Resolved]
  - Blood magnesium decreased [Not Recovered/Not Resolved]
  - Blood potassium decreased [Not Recovered/Not Resolved]
  - Neoplasm [Not Recovered/Not Resolved]
  - Back pain [Not Recovered/Not Resolved]
  - Visual impairment [Not Recovered/Not Resolved]
  - Fatigue [Not Recovered/Not Resolved]
  - Asthenia [Not Recovered/Not Resolved]

NARRATIVE: CASE EVENT DATE: 20220330
